FAERS Safety Report 5337546-8 (Version None)
Quarter: 2007Q2

REPORT INFORMATION
  Report Type: 
  Country: None (occurrence: None)
  Receive Date: 20070524
  Receipt Date: 20070514
  Transmission Date: 20071010
  Serious: Yes (Death)
  Sender: FDA-Public Use
  Company Number: 2007S1003265

PATIENT
  Age: 22 Year
  Sex: Female
  Weight: 55.7924 kg

DRUGS (1)
  1. FENTANYL TRANSDERMAL SYSTEM [Suspect]
     Dosage: 150 X1; TRANSDERMAL
     Route: 062
     Dates: end: 20070413

REACTIONS (6)
  - BRAIN OEDEMA [None]
  - COMPLETED SUICIDE [None]
  - DRUG TOXICITY [None]
  - PULMONARY OEDEMA [None]
  - URINARY RETENTION [None]
  - WRONG TECHNIQUE IN DRUG USAGE PROCESS [None]
